FAERS Safety Report 16269405 (Version 3)
Quarter: 2019Q3

REPORT INFORMATION
  Report Type: Report from Study
  Country: US (occurrence: US)
  Receive Date: 20190503
  Receipt Date: 20190725
  Transmission Date: 20191004
  Serious: Yes (Other)
  Sender: FDA-Public Use
  Company Number: US-BAYER-2019-083552

PATIENT
  Age: 58 Year
  Sex: Female
  Weight: 72.56 kg

DRUGS (11)
  1. PANTOPRAZOLE [Concomitant]
     Active Substance: PANTOPRAZOLE
  2. IBUPROFEN. [Concomitant]
     Active Substance: IBUPROFEN
  3. STIVARGA [Suspect]
     Active Substance: REGORAFENIB
     Indication: COLON CANCER
     Dosage: 80 MG DAILY
     Route: 048
     Dates: start: 20190418, end: 20190704
  4. OXYCODONE [Concomitant]
     Active Substance: OXYCODONE
  5. IRBESARTAN. [Concomitant]
     Active Substance: IRBESARTAN
  6. VITAMIN D2 [Concomitant]
     Active Substance: ERGOCALCIFEROL
  7. IRON [Concomitant]
     Active Substance: IRON
  8. LYRICA [Concomitant]
     Active Substance: PREGABALIN
  9. AMLODIPINE [Concomitant]
     Active Substance: AMLODIPINE BESYLATE
  10. CIPROFLOXACIN. [Concomitant]
     Active Substance: CIPROFLOXACIN
  11. ATORVASTATIN [Concomitant]
     Active Substance: ATORVASTATIN

REACTIONS (10)
  - Hypoaesthesia [Recovering/Resolving]
  - Neuropathy peripheral [Recovering/Resolving]
  - Paraesthesia [Recovering/Resolving]
  - Palmar-plantar erythrodysaesthesia syndrome [None]
  - Mobility decreased [Recovering/Resolving]
  - Oropharyngeal pain [Unknown]
  - Pain in extremity [Recovering/Resolving]
  - Off label use [None]
  - Headache [None]
  - Hypertension [Recovering/Resolving]

NARRATIVE: CASE EVENT DATE: 20190418
